FAERS Safety Report 23099477 (Version 1)
Quarter: 2023Q4

REPORT INFORMATION
  Report Type: Spontaneous
  Country: US (occurrence: US)
  Receive Date: 20231024
  Receipt Date: 20231024
  Transmission Date: 20240109
  Serious: Yes (Other)
  Sender: FDA-Public Use
  Company Number: US-ROCHE-3213386

PATIENT
  Age: 62 Year
  Sex: Female
  Weight: 106.69 kg

DRUGS (16)
  1. CAPECITABINE [Suspect]
     Active Substance: CAPECITABINE
     Indication: Breast cancer
     Dosage: BID, PATIENT STATES STARTED 2005 OR 2006 AROUND LIVER BIOPSY, ENDED AROUND 2007 OR?2008 ;ONGOING...
     Route: 048
  2. CAPECITABINE [Suspect]
     Active Substance: CAPECITABINE
     Indication: Breast cancer metastatic
     Dosage: BID, PATIENT STATES STARTED 2005 OR 2006 AROUND LIVER BIOPSY, ENDED AROUND 2007 OR?2008 ;ONGOING...
     Route: 048
  3. HERCEPTIN [Suspect]
     Active Substance: TRASTUZUMAB
     Indication: Breast cancer
     Route: 042
     Dates: start: 20230403, end: 20230403
  4. HERCEPTIN [Suspect]
     Active Substance: TRASTUZUMAB
     Indication: Breast cancer metastatic
     Route: 042
     Dates: start: 20230403, end: 20230403
  5. HERCEPTIN [Suspect]
     Active Substance: TRASTUZUMAB
     Indication: Breast cancer
     Route: 042
     Dates: start: 20230710, end: 20230925
  6. HERCEPTIN [Suspect]
     Active Substance: TRASTUZUMAB
     Indication: Breast cancer metastatic
     Route: 042
     Dates: start: 20230710, end: 20230925
  7. HERCEPTIN [Suspect]
     Active Substance: TRASTUZUMAB
     Indication: Breast cancer
     Dosage: 200 MG, 1/WEEK, IV DRIP. PATIENT STATES THEY GET IT ONCE A WEEK FOR ONE HOUR ;ONGOING: YES
     Route: 042
  8. HERCEPTIN [Suspect]
     Active Substance: TRASTUZUMAB
     Indication: Breast cancer metastatic
     Dosage: 200 MG, 1/WEEK, IV DRIP. PATIENT STATES THEY GET IT ONCE A WEEK FOR ONE HOUR ;ONGOING: YES
     Route: 042
  9. HERCEPTIN [Suspect]
     Active Substance: TRASTUZUMAB
     Indication: Breast cancer
     Dosage: INFUSE 220MG INTRAVENOUSLY EVERY WEEK UNTIL PROGRESSION OR INTOLERANCE
     Route: 042
  10. HERCEPTIN [Suspect]
     Active Substance: TRASTUZUMAB
     Indication: Breast cancer metastatic
     Dosage: INFUSE 220MG INTRAVENOUSLY EVERY WEEK UNTIL PROGRESSION OR INTOLERANCE
     Route: 042
  11. ARIMIDEX [Concomitant]
     Active Substance: ANASTROZOLE
     Dosage: PATIENT STATED THE MAYO CLINIC PUT HER ON IT AROUND 2004 ;ONGOING: YES
     Route: 048
  12. LEVOTHYROXINE [Concomitant]
     Active Substance: LEVOTHYROXINE
     Route: 048
     Dates: start: 2002
  13. ZOLEDRONIC [Concomitant]
     Active Substance: ZOLEDRONIC ACID
     Dosage: PATIENT STATES STARTED AFTER CHEMO, INITIALLY 1 ONCE A MONTH THEN HCP CHANGED DUE TO?OVER DOSING ...
     Route: 042
  14. CHOLECALCIFEROL [Concomitant]
     Active Substance: CHOLECALCIFEROL
     Dosage: PATIENT STATES 1200 MG CALCIUM/5000 IU DOSAGE, 2 PILLS ONCE A DAY ;ONGOING: YES
     Route: 048
     Dates: start: 202209
  15. PREDNISONE [Concomitant]
     Active Substance: PREDNISONE
  16. ZOMETA [Concomitant]
     Active Substance: ZOLEDRONIC ACID

REACTIONS (16)
  - Mitral valve incompetence [Unknown]
  - Cardiomyopathy [Unknown]
  - Chronic kidney disease [Not Recovered/Not Resolved]
  - Metastases to liver [Not Recovered/Not Resolved]
  - Type 2 diabetes mellitus [Not Recovered/Not Resolved]
  - Metastases to bone [Not Recovered/Not Resolved]
  - Rib fracture [Unknown]
  - Foot fracture [Recovered/Resolved]
  - Heart rate irregular [Unknown]
  - Arthritis [Not Recovered/Not Resolved]
  - Diarrhoea [Unknown]
  - Vomiting [Unknown]
  - Drug intolerance [Unknown]
  - Ejection fraction decreased [Recovered/Resolved]
  - Frequent bowel movements [Unknown]
  - Flatulence [Unknown]

NARRATIVE: CASE EVENT DATE: 20190101
